FAERS Safety Report 11142701 (Version 1)
Quarter: 2015Q2

REPORT INFORMATION
  Report Type: Spontaneous
  Country: IN (occurrence: IN)
  Receive Date: 20150527
  Receipt Date: 20150527
  Transmission Date: 20150821
  Serious: Yes (Other)
  Sender: FDA-Public Use
  Company Number: IN-AMGEN-INDSP2014030554

PATIENT
  Age: 55 Year

DRUGS (1)
  1. ENBREL [Suspect]
     Active Substance: ETANERCEPT
     Indication: PRODUCT USED FOR UNKNOWN INDICATION
     Dosage: 50 MG, UNK
     Route: 065

REACTIONS (10)
  - Injection site extravasation [Unknown]
  - Rheumatoid arthritis [Unknown]
  - Immunodeficiency [Unknown]
  - Pruritus [Unknown]
  - Dyspnoea [Unknown]
  - Inflammation [Unknown]
  - Pain [Unknown]
  - Condition aggravated [Unknown]
  - Product quality issue [Unknown]
  - Sweat gland disorder [Unknown]

NARRATIVE: CASE EVENT DATE: 20140419
